FAERS Safety Report 22011531 (Version 2)
Quarter: 2023Q1

REPORT INFORMATION
  Report Type: Spontaneous
  Country: FR (occurrence: FR)
  Receive Date: 20230220
  Receipt Date: 20230308
  Transmission Date: 20230418
  Serious: Yes (Other)
  Sender: FDA-Public Use
  Company Number: FR-AMGEN-FRASP2023014012

PATIENT
  Age: 43 Year
  Sex: Female

DRUGS (7)
  1. BEVACIZUMAB [Suspect]
     Active Substance: BEVACIZUMAB
     Indication: Ovarian cancer
     Dosage: RECEIVED SIX CURES,FOLLOWED BY 26
     Route: 065
  2. GEMCITABINE [Suspect]
     Active Substance: GEMCITABINE
     Indication: Ovarian cancer
     Dosage: UNK, (UNK)
     Route: 065
  3. TAMOXIFEN [Suspect]
     Active Substance: TAMOXIFEN
     Indication: Ovarian cancer
     Dosage: FILM-COATED TABLET
     Route: 048
  4. PANITUMUMAB [Suspect]
     Active Substance: PANITUMUMAB
     Indication: Ovarian cancer
     Dosage: UNK, (UNK)
     Route: 065
  5. DOXORUBICIN [Concomitant]
     Active Substance: DOXORUBICIN
     Indication: Ovarian cancer
     Dosage: RECEIVED FOR SIX CURES
     Route: 065
  6. CARBOPLATIN [Concomitant]
     Active Substance: CARBOPLATIN
     Indication: Ovarian cancer
     Dosage: RECEIVED SIX CURES
     Route: 065
  7. COBIMETINIB [Concomitant]
     Active Substance: COBIMETINIB
     Indication: Ovarian cancer
     Dosage: UNK, (UNK)
     Route: 065

REACTIONS (3)
  - Ovarian cancer metastatic [Unknown]
  - Skin toxicity [Unknown]
  - Off label use [Unknown]
